FAERS Safety Report 13880154 (Version 1)
Quarter: 2017Q3

REPORT INFORMATION
  Report Type: Spontaneous
  Country: US (occurrence: None)
  Receive Date: 20170817
  Receipt Date: 20170817
  Transmission Date: 20171127
  Serious: No
  Sender: FDA-Public Use
  Company Number: None

PATIENT
  Age: 9 Year
  Sex: Male
  Weight: 29.48 kg

DRUGS (1)
  1. GUANFACINE ER 1MG [Suspect]
     Active Substance: GUANFACINE

REACTIONS (1)
  - Drug ineffective [None]
